FAERS Safety Report 18429123 (Version 1)
Quarter: 2020Q4

REPORT INFORMATION
  Report Type: Spontaneous
  Country: US (occurrence: US)
  Receive Date: 20201026
  Receipt Date: 20201026
  Transmission Date: 20210114
  Serious: No
  Sender: FDA-Public Use
  Company Number: US-PFIZER INC-2020410814

PATIENT
  Sex: Female

DRUGS (2)
  1. BRAFTOVI [Suspect]
     Active Substance: ENCORAFENIB
     Indication: SKIN CANCER
     Dosage: 450 MG, DAILY (75MG 6 CAPSULES BY MOUTH DAILY FOR TOTAL DOSE 450MG)
     Route: 048
     Dates: start: 202010
  2. MEKTOVI [Suspect]
     Active Substance: BINIMETINIB
     Indication: SKIN CANCER
     Dosage: 45 MG, 2X/DAY (15MG 3 TABLET BY MOUTH TWICE A DAY)
     Route: 048
     Dates: start: 202010

REACTIONS (1)
  - Dysphagia [Unknown]
